FAERS Safety Report 16487981 (Version 1)
Quarter: 2019Q2

REPORT INFORMATION
  Report Type: Spontaneous
  Country: FR (occurrence: FR)
  Receive Date: 20190627
  Receipt Date: 20190627
  Transmission Date: 20190711
  Serious: Yes (Hospitalization)
  Sender: FDA-Public Use
  Company Number: FR-MYLANLABS-2019M1059446

PATIENT
  Age: 68 Year
  Sex: Male
  Weight: 85 kg

DRUGS (8)
  1. KARDEGIC [Concomitant]
     Active Substance: ASPIRIN DL-LYSINE
     Dosage: UNK
     Route: 048
  2. MIRCERA [Concomitant]
     Active Substance: METHOXY POLYETHYLENE GLYCOL-EPOETIN BETA
     Dosage: UNK
  3. AMOXICILLINE                       /00249601/ [Concomitant]
     Active Substance: AMOXICILLIN
     Indication: ABDOMINAL PAIN
     Dosage: 3 GRAM, QD
     Route: 048
     Dates: start: 20181102, end: 20181112
  4. SPASFON LYOC [Concomitant]
     Active Substance: PHLOROGLUCINOL
     Indication: ABDOMINAL PAIN
     Dosage: 640 MILLIGRAM, QD
     Route: 048
     Dates: start: 20181102, end: 20181107
  5. NOVONORM [Concomitant]
     Active Substance: REPAGLINIDE
     Dosage: UNK
     Route: 048
  6. KETOPROFEN. [Suspect]
     Active Substance: KETOPROFEN
     Indication: ABDOMINAL PAIN
     Dosage: 200 MILLIGRAM, QD
     Route: 048
     Dates: start: 20181102, end: 20181106
  7. DOLIPRANE [Concomitant]
     Active Substance: ACETAMINOPHEN
     Indication: ABDOMINAL PAIN
     Dosage: 4 GRAM, QD
     Route: 048
     Dates: start: 20181102, end: 20181107
  8. LASILIX                            /00032601/ [Concomitant]
     Active Substance: FUROSEMIDE
     Dosage: UNK
     Route: 048

REACTIONS (2)
  - Contraindicated product prescribed [Recovered/Resolved]
  - Renal failure [Recovering/Resolving]

NARRATIVE: CASE EVENT DATE: 20181102
